FAERS Safety Report 16110638 (Version 2)
Quarter: 2021Q1

REPORT INFORMATION
  Report Type: Spontaneous
  Country: US (occurrence: US)
  Receive Date: 20190325
  Receipt Date: 20210318
  Transmission Date: 20210419
  Serious: No
  Sender: FDA-Public Use
  Company Number: US-AUROBINDO-AUR-APU-2018-056068

PATIENT
  Sex: Female
  Weight: 52.15 kg

DRUGS (2)
  1. GABAPENTIN CAPSULES 100 MG [Suspect]
     Active Substance: GABAPENTIN
     Indication: NEURALGIA
     Dosage: 6 PILLS A DAY
     Route: 065
     Dates: start: 20180911
  2. GABAPENTIN CAPSULES 100 MG [Suspect]
     Active Substance: GABAPENTIN
     Indication: GUILLAIN-BARRE SYNDROME

REACTIONS (2)
  - Drug ineffective [Unknown]
  - Product colour issue [Unknown]
